FAERS Safety Report 19477047 (Version 1)
Quarter: 2021Q2

REPORT INFORMATION
  Report Type: Spontaneous
  Country: US (occurrence: US)
  Receive Date: 20210629
  Receipt Date: 20210629
  Transmission Date: 20210717
  Serious: No
  Sender: FDA-Public Use
  Company Number: None

PATIENT
  Age: 89 Year
  Sex: Male

DRUGS (1)
  1. CAPECITABINE 500MG NOVADOZ PHARMACEUTICALS [Suspect]
     Active Substance: CAPECITABINE
     Indication: BREAST CANCER MALE
     Dosage: ? ON HOLD
     Route: 048
     Dates: start: 20200902

REACTIONS (2)
  - Blood glucose increased [None]
  - Disorientation [None]

NARRATIVE: CASE EVENT DATE: 20210615
